FAERS Safety Report 20189612 (Version 2)
Quarter: 2021Q4

REPORT INFORMATION
  Report Type: Spontaneous
  Country: ES (occurrence: ES)
  Receive Date: 20211215
  Receipt Date: 20211217
  Transmission Date: 20220303
  Serious: Yes (Other)
  Sender: FDA-Public Use
  Company Number: ES-NOVARTISPH-NVSC2021ES147300

PATIENT
  Age: 56 Year
  Sex: Female

DRUGS (11)
  1. RITUXIMAB [Suspect]
     Active Substance: RITUXIMAB
     Indication: Prophylaxis against transplant rejection
     Dosage: 375 MG/M2, QW,ONE DOSE; SCHEDULED TO BE ADMINISTERED WEEKLY STARTING FROM DAY -35
     Route: 042
  2. RITUXIMAB [Suspect]
     Active Substance: RITUXIMAB
     Indication: Bone marrow conditioning regimen
  3. RITUXIMAB [Suspect]
     Active Substance: RITUXIMAB
     Indication: Immune tolerance induction
  4. MYCOPHENOLATE MOFETIL [Suspect]
     Active Substance: MYCOPHENOLATE MOFETIL
     Indication: Prophylaxis against transplant rejection
     Dosage: 10 MG/KG, QD
     Route: 065
  5. MYCOPHENOLATE MOFETIL [Suspect]
     Active Substance: MYCOPHENOLATE MOFETIL
     Indication: Prophylaxis against graft versus host disease
  6. BUSULFAN [Suspect]
     Active Substance: BUSULFAN
     Indication: Prophylaxis against transplant rejection
     Dosage: 3.2 MG/KG, QD ON DAYS -6 TO -3)
     Route: 042
  7. BUSULFAN [Suspect]
     Active Substance: BUSULFAN
     Indication: Bone marrow conditioning regimen
  8. FLUDARABINE [Suspect]
     Active Substance: FLUDARABINE PHOSPHATE
     Indication: Prophylaxis against transplant rejection
     Dosage: 40 MG/M2, QD ON DAYS -6 TO -3
     Route: 065
  9. FLUDARABINE [Suspect]
     Active Substance: FLUDARABINE PHOSPHATE
     Indication: Bone marrow conditioning regimen
  10. CYCLOPHOSPHAMIDE [Suspect]
     Active Substance: CYCLOPHOSPHAMIDE
     Indication: Prophylaxis against transplant rejection
     Dosage: (HIGH DOSE POST TRANSPLANT ) 50 MG/KG, QD ON DAYS +3 AND +4
     Route: 065
  11. CYCLOPHOSPHAMIDE [Suspect]
     Active Substance: CYCLOPHOSPHAMIDE
     Indication: Prophylaxis against graft versus host disease

REACTIONS (3)
  - Fungal infection [Unknown]
  - Off label use [Unknown]
  - Drug effective for unapproved indication [Unknown]
